FAERS Safety Report 15712958 (Version 2)
Quarter: 2019Q1

REPORT INFORMATION
  Report Type: Report from Study
  Country: CA (occurrence: CA)
  Receive Date: 20181212
  Receipt Date: 20190102
  Transmission Date: 20190417
  Serious: Yes (Hospitalization)
  Sender: FDA-Public Use
  Company Number: CA-HORIZON-RAV-0210-2018

PATIENT
  Age: 6 Year
  Sex: Female

DRUGS (6)
  1. KEPPRA [Concomitant]
     Active Substance: LEVETIRACETAM
  2. LAMOTRIGINE. [Concomitant]
     Active Substance: LAMOTRIGINE
     Dosage: 150 MG TABLET TWICE A DAY
  3. POTASSIUM CHLORIDE. [Concomitant]
     Active Substance: POTASSIUM CHLORIDE
     Dosage: 3.75 ML TWICE A DAY
  4. LEVETIRACETAM. [Concomitant]
     Active Substance: LEVETIRACETAM
     Dosage: 10 ML TWICE A DAY
  5. L-ARGININE [Concomitant]
     Active Substance: ARGININE
     Dosage: POWDER 6 MG PER DAY MIX IN SPECIAL HOME FORMULA
  6. RAVICTI [Suspect]
     Active Substance: GLYCEROL PHENYLBUTYRATE
     Indication: ARGININOSUCCINATE LYASE DEFICIENCY
     Dosage: 1.5 ML QID
     Dates: start: 20180509

REACTIONS (7)
  - Influenza [Recovering/Resolving]
  - Drug effect decreased [Unknown]
  - Vomiting [Recovered/Resolved]
  - Ammonia increased [Recovered/Resolved]
  - Clostridium test positive [Recovered/Resolved]
  - Cough [Recovered/Resolved]
  - Rhinorrhoea [Recovered/Resolved]

NARRATIVE: CASE EVENT DATE: 20180915
